FAERS Safety Report 4281911-7 (Version None)
Quarter: 2004Q1

REPORT INFORMATION
  Report Type: 
  Country: None (occurrence: None)
  Receive Date: 20040129
  Receipt Date: 20040122
  Transmission Date: 20041129
  Serious: Yes (Other)
  Sender: FDA-Public Use
  Company Number: PHBS2004ES01127

PATIENT
  Age: 16 Year
  Sex: Female

DRUGS (4)
  1. TRILEPTAL [Suspect]
     Dosage: 300 MG/DAY
     Route: 048
     Dates: start: 20030929
  2. ZYPREXA [Suspect]
     Indication: EATING DISORDER
     Dosage: 5 MG/DAY
     Route: 048
     Dates: start: 20030929, end: 20031120
  3. TOPAMAX [Suspect]
     Dosage: 50 MG/DAY
     Route: 048
     Dates: start: 20030901, end: 20030929
  4. FLUOXETINE [Concomitant]
     Route: 065

REACTIONS (1)
  - CONVULSION [None]
